FAERS Safety Report 17749097 (Version 4)
Quarter: 2020Q4

REPORT INFORMATION
  Report Type: Spontaneous
  Country: US (occurrence: US)
  Receive Date: 20200506
  Receipt Date: 20201027
  Transmission Date: 20210113
  Serious: Yes (Hospitalization, Other)
  Sender: FDA-Public Use
  Company Number: US-B.I. PHARMACEUTICALS,INC./RIDGEFIELD-2020-BI-023205

PATIENT
  Age: 58 Year
  Sex: Male
  Weight: 110 kg

DRUGS (28)
  1. FUROSEMIDE. [Concomitant]
     Active Substance: FUROSEMIDE
     Indication: PRODUCT USED FOR UNKNOWN INDICATION
  2. ASPIRIN [ACETYLSALICYLIC ACID] [Concomitant]
     Active Substance: ASPIRIN
     Route: 048
  3. TAMSULOSIN [Concomitant]
     Active Substance: TAMSULOSIN
     Route: 048
  4. TRAMADOL. [Concomitant]
     Active Substance: TRAMADOL
     Indication: PAIN
     Route: 048
  5. GABAPENTIN. [Concomitant]
     Active Substance: GABAPENTIN
     Route: 048
  6. TYLENOL [Concomitant]
     Active Substance: ACETAMINOPHEN
     Indication: PAIN
     Dosage: TAKE 1-2 TABLETS BY MOUTH EVERY 4 HOURS AS NEEDED FREQUENCY:
     Route: 048
  7. INSULIN ASPART [Concomitant]
     Active Substance: INSULIN ASPART
     Dosage: INJECT 0-50 UNITS UNDER THE SKIN 3 TIMES DAILY WITH MEALS.
     Route: 058
  8. INSULIN ASPART [Concomitant]
     Active Substance: INSULIN ASPART
     Dosage: INJECT 0-50 UNITS UNDER THE SKIN AT BED TIME
  9. LISINOPRIL. [Concomitant]
     Active Substance: LISINOPRIL
  10. AMLODIPINE [Concomitant]
     Active Substance: AMLODIPINE BESYLATE
     Route: 048
  11. METFORMIN HCL [Concomitant]
     Active Substance: METFORMIN HYDROCHLORIDE
     Indication: PRODUCT USED FOR UNKNOWN INDICATION
  12. METOPROLOL. [Concomitant]
     Active Substance: METOPROLOL
     Indication: PRODUCT USED FOR UNKNOWN INDICATION
  13. MIRALAX [Concomitant]
     Active Substance: POLYETHYLENE GLYCOL 3350
     Indication: CONSTIPATION
     Dosage: TAKE 1 PACKET BY MOUTH ONCE DAILY AS NEEDED (THE PATIENT TAKING DIFFRENTLY TAKE 17 GM BY MOUTH ONCE
     Route: 048
  14. INSULIN [Concomitant]
     Active Substance: INSULIN NOS
     Indication: PRODUCT USED FOR UNKNOWN INDICATION
  15. LISINOPRIL. [Concomitant]
     Active Substance: LISINOPRIL
     Indication: PRODUCT USED FOR UNKNOWN INDICATION
  16. INSULIN GLARGINE [Concomitant]
     Active Substance: INSULIN GLARGINE
     Route: 058
  17. HYDROCHLOROTHIAZIDE. [Concomitant]
     Active Substance: HYDROCHLOROTHIAZIDE
     Indication: PRODUCT USED FOR UNKNOWN INDICATION
  18. MULTAQ [Concomitant]
     Active Substance: DRONEDARONE
     Dosage: TAKE 400 MG BY MOUTH TWICE DAILY WITH BREAKFAST AND SUPPER
     Route: 048
  19. INSULIN ASPART [Concomitant]
     Active Substance: INSULIN ASPART
     Dosage: INJECT 8 UNITS UNDER THE SKIN 3 TIMES DAILY- WITH MEALS (PATIENT TAKING DIFFRENTLY, INJECT 6 UNITS U
  20. TADALAFIL. [Concomitant]
     Active Substance: TADALAFIL
     Route: 048
  21. NITROGLYCERIN. [Concomitant]
     Active Substance: NITROGLYCERIN
     Indication: CHEST PAIN
     Route: 060
  22. LANTUS [Concomitant]
     Active Substance: INSULIN GLARGINE
     Dosage: 100 ML/UNIT INJECTION  INJECT 40 UNITS UNDER THE SKIN DAILY WITH BREAKFAST (THE PATIENT TAKING DIFFR
     Route: 058
  23. PRADAXA [Suspect]
     Active Substance: DABIGATRAN ETEXILATE MESYLATE
     Indication: ATRIAL FIBRILLATION
     Route: 048
     Dates: start: 20120907, end: 2017
  24. CARVEDILOL. [Concomitant]
     Active Substance: CARVEDILOL
     Dosage: TAKE 12.5 MG BY MOUTH TWICE DAILY WITH BREAKFAST AND SUPPER
     Route: 048
  25. CLONIDINE. [Concomitant]
     Active Substance: CLONIDINE
     Route: 048
  26. LOVASTATIN. [Concomitant]
     Active Substance: LOVASTATIN
     Route: 048
  27. GLYBURIDE. [Concomitant]
     Active Substance: GLYBURIDE
     Indication: PRODUCT USED FOR UNKNOWN INDICATION
  28. MULTIVITAMIN + MINERAL [Concomitant]
     Active Substance: MINERALS\VITAMINS
     Route: 048

REACTIONS (1)
  - Gastrointestinal haemorrhage [Recovered/Resolved]

NARRATIVE: CASE EVENT DATE: 20170903
